FAERS Safety Report 20220365 (Version 1)
Quarter: 2021Q4

REPORT INFORMATION
  Report Type: Spontaneous
  Country: HK (occurrence: HK)
  Receive Date: 20211223
  Receipt Date: 20211223
  Transmission Date: 20220304
  Serious: No
  Sender: FDA-Public Use
  Company Number: HK-LUPIN PHARMACEUTICALS INC.-2021-24959

PATIENT
  Age: 64 Year
  Sex: Male

DRUGS (6)
  1. SULFAMETHOXAZOLE AND TRIMETHOPRIM [Suspect]
     Active Substance: SULFAMETHOXAZOLE\TRIMETHOPRIM
     Indication: Chyluria
     Dosage: 960 MILLIGRAM, BID
     Route: 048
  2. SULFAMETHOXAZOLE AND TRIMETHOPRIM [Suspect]
     Active Substance: SULFAMETHOXAZOLE\TRIMETHOPRIM
     Indication: Mycobacterium fortuitum infection
  3. AMIKACIN [Concomitant]
     Active Substance: AMIKACIN
     Indication: Chyluria
     Dosage: 10 MILLIGRAM/KILOGRAM, QD
     Route: 042
  4. AMIKACIN [Concomitant]
     Active Substance: AMIKACIN
     Indication: Mycobacterium fortuitum infection
  5. LEVOFLOXACIN [Concomitant]
     Active Substance: LEVOFLOXACIN
     Indication: Chyluria
     Dosage: 500 MILLIGRAM, QD
     Route: 042
  6. LEVOFLOXACIN [Concomitant]
     Active Substance: LEVOFLOXACIN
     Indication: Mycobacterium fortuitum infection

REACTIONS (1)
  - Hyponatraemia [Unknown]
